FAERS Safety Report 4364034-8 (Version None)
Quarter: 2004Q2

REPORT INFORMATION
  Report Type: 
  Country: None (occurrence: None)
  Receive Date: 20040520
  Receipt Date: 20040520
  Transmission Date: 20050107
  Serious: Yes (Other)
  Sender: FDA-Public Use
  Company Number: None

PATIENT
  Age: 32 Year
  Sex: Female
  Weight: 63.5036 kg

DRUGS (4)
  1. PAXIL [Suspect]
     Indication: ANXIETY
     Dosage: 40 1 PER DAY OTHER
     Dates: start: 19950201, end: 19960101
  2. PAXIL [Suspect]
     Indication: DEPRESSION
     Dosage: 40 1 PER DAY OTHER
     Dates: start: 19950201, end: 19960101
  3. PAXIL [Suspect]
     Indication: ANXIETY
     Dosage: 40 1 PER DAY OTHER
     Dates: start: 19960501, end: 20040519
  4. PAXIL [Suspect]
     Indication: DEPRESSION
     Dosage: 40 1 PER DAY OTHER
     Dates: start: 19960501, end: 20040519

REACTIONS (3)
  - CRYING [None]
  - DEPRESSION [None]
  - VOMITING [None]
